FAERS Safety Report 4832294-2 (Version None)
Quarter: 2005Q4

REPORT INFORMATION
  Report Type: 
  Country: None (occurrence: None)
  Receive Date: 20051114
  Receipt Date: 20051103
  Transmission Date: 20060501
  Serious: Yes (Other)
  Sender: FDA-Public Use
  Company Number: B0399385A

PATIENT
  Age: 38 Year
  Sex: Female

DRUGS (3)
  1. COMBIVIR [Suspect]
     Indication: HIV INFECTION
     Dosage: / TWICE PER DAY / ORAL
     Route: 048
  2. NEVIRAPINE [Suspect]
     Indication: HIV INFECTION
     Dosage: 200 MG / TWICE PER DAY / ORAL
     Route: 048
  3. RETROVIR [Suspect]
     Dosage: PARENTERAL
     Route: 051

REACTIONS (6)
  - ANAEMIA MACROCYTIC [None]
  - CAESAREAN SECTION [None]
  - DRUG EXPOSURE DURING PREGNANCY [None]
  - FOETAL MOVEMENTS DECREASED [None]
  - PARVOVIRUS B19 SEROLOGY POSITIVE [None]
  - WEIGHT GAIN POOR [None]
